FAERS Safety Report 6289129-3 (Version None)
Quarter: 2009Q3

REPORT INFORMATION
  Report Type: 
  Country: None (occurrence: None)
  Receive Date: 20090729
  Receipt Date: 20090707
  Transmission Date: 20100115
  Serious: Yes (Other)
  Sender: FDA-Public Use
  Company Number: US-GENENTECH, INC.-287653

PATIENT
  Sex: Female
  Weight: 58.957 kg

DRUGS (1)
  1. XOLAIR [Suspect]
     Indication: DRUG USE FOR UNKNOWN INDICATION
     Dosage: 375 A?G, Q2W
     Route: 058
     Dates: start: 20090519, end: 20090707

REACTIONS (1)
  - URTICARIA [None]
